FAERS Safety Report 7168277-X (Version None)
Quarter: 2010Q4

REPORT INFORMATION
  Report Type: 
  Country: None (occurrence: None)
  Receive Date: 20101216
  Receipt Date: 20101208
  Transmission Date: 20110411
  Serious: Yes (Hospitalization)
  Sender: FDA-Public Use
  Company Number: US-ABBOTT-10P-163-0690267-00

PATIENT
  Sex: Male
  Weight: 73.094 kg

DRUGS (3)
  1. NIASPAN [Suspect]
     Indication: HYPERLIPIDAEMIA
     Dates: start: 20100823, end: 20101001
  2. DILTIAZEM HYDROCHLORIDE [Concomitant]
     Indication: PRODUCT USED FOR UNKNOWN INDICATION
  3. CARDURA [Concomitant]
     Indication: PRODUCT USED FOR UNKNOWN INDICATION

REACTIONS (10)
  - DYSPNOEA [None]
  - HEPATIC ENZYME INCREASED [None]
  - HEPATIC STEATOSIS [None]
  - MYALGIA [None]
  - PAIN IN EXTREMITY [None]
  - PALPITATIONS [None]
  - SENSATION OF HEAVINESS [None]
  - VISION BLURRED [None]
  - WEIGHT INCREASED [None]
  - YELLOW SKIN [None]
